FAERS Safety Report 16016805 (Version 3)
Quarter: 2019Q1

REPORT INFORMATION
  Report Type: Spontaneous
  Country: JP (occurrence: JP)
  Receive Date: 20190228
  Receipt Date: 20190327
  Transmission Date: 20190418
  Serious: No
  Sender: FDA-Public Use
  Company Number: JP-ROCHE-2274557

PATIENT
  Age: 7 Decade
  Sex: Male

DRUGS (2)
  1. GAZYVA [Suspect]
     Active Substance: OBINUTUZUMAB
     Indication: B-CELL LYMPHOMA
     Route: 041
     Dates: start: 20181017
  2. TREAKISYM [Suspect]
     Active Substance: BENDAMUSTINE HYDROCHLORIDE
     Indication: B-CELL LYMPHOMA
     Route: 065

REACTIONS (2)
  - Neutrophil count decreased [Recovering/Resolving]
  - Infusion related reaction [Recovered/Resolved]

NARRATIVE: CASE EVENT DATE: 20181017
